FAERS Safety Report 7221942-8 (Version None)
Quarter: 2011Q1

REPORT INFORMATION
  Report Type: 
  Country: None (occurrence: None)
  Receive Date: 20110112
  Receipt Date: 20110111
  Transmission Date: 20110831
  Serious: Yes (Other)
  Sender: FDA-Public Use
  Company Number: B0681048A

PATIENT
  Sex: Female

DRUGS (2)
  1. ZOVIRAX [Suspect]
     Indication: HERPES VIRUS INFECTION
     Dosage: 400MG THREE TIMES PER DAY
     Route: 065
     Dates: start: 20090801, end: 20090801
  2. ZELITREX [Suspect]
     Indication: GENITAL HERPES
     Dosage: 500MG TWICE PER DAY
     Route: 048
     Dates: start: 20100927, end: 20100928

REACTIONS (3)
  - DIARRHOEA [None]
  - SOMNOLENCE [None]
  - CONFUSIONAL STATE [None]
